FAERS Safety Report 4501462-1 (Version None)
Quarter: 2004Q4

REPORT INFORMATION
  Report Type: 
  Country: None (occurrence: None)
  Receive Date: 20041115
  Receipt Date: 20041021
  Transmission Date: 20050328
  Serious: Yes (Life-Threatening, Disabling, Other)
  Sender: FDA-Public Use
  Company Number: US-MERCK-0410USA03425

PATIENT
  Age: 80 Year
  Sex: Female
  Weight: 54 kg

DRUGS (10)
  1. VIOXX [Suspect]
     Indication: ARTHRITIS
     Route: 048
     Dates: start: 19990101, end: 20041001
  2. ISOSORBIDE [Concomitant]
     Route: 065
  3. ACIPHEX [Concomitant]
     Route: 065
  4. MECLIZINE [Concomitant]
     Route: 065
  5. METOPROLOL [Concomitant]
     Route: 065
  6. PRAVACHOL [Concomitant]
     Route: 065
  7. DIOVAN [Concomitant]
     Route: 065
  8. ALPRAZOLAM [Concomitant]
     Route: 065
  9. FUROSEMIDE [Concomitant]
     Route: 065
  10. DARVON [Concomitant]
     Route: 065

REACTIONS (3)
  - CEREBRAL INFARCTION [None]
  - CEREBROVASCULAR ACCIDENT [None]
  - DEMENTIA [None]
